FAERS Safety Report 9790713 (Version 2)
Quarter: 2014Q1

REPORT INFORMATION
  Report Type: Spontaneous
  Country: IL (occurrence: IL)
  Receive Date: 20131231
  Receipt Date: 20140106
  Transmission Date: 20141002
  Serious: Yes (Death)
  Sender: FDA-Public Use
  Company Number: IL-GLAXOSMITHKLINE-B0956550A

PATIENT
  Age: 71 Year
  Sex: Female
  Weight: 58 kg

DRUGS (2)
  1. FLOLAN [Suspect]
     Indication: PULMONARY HYPERTENSION
     Dosage: 21NGKH PER DAY
     Route: 042
     Dates: end: 20131214
  2. UNSPECIFIED DRUGS [Concomitant]
     Route: 065

REACTIONS (1)
  - Cardiopulmonary failure [Fatal]
